FAERS Safety Report 23153147 (Version 1)
Quarter: 2023Q4

REPORT INFORMATION
  Report Type: Spontaneous
  Country: US (occurrence: US)
  Receive Date: 20231107
  Receipt Date: 20231107
  Transmission Date: 20240109
  Serious: Yes (Hospitalization, Other)
  Sender: FDA-Public Use
  Company Number: US-Accord-388277

PATIENT
  Age: 56 Year
  Sex: Male

DRUGS (2)
  1. FLUOROURACIL [Suspect]
     Active Substance: FLUOROURACIL
     Indication: Rectal cancer
  2. MITOMYCIN [Suspect]
     Active Substance: MITOMYCIN
     Indication: Rectal cancer

REACTIONS (7)
  - Cytomegalovirus oesophagitis [Unknown]
  - Off label use [Unknown]
  - Escherichia sepsis [Unknown]
  - Atrial fibrillation [Unknown]
  - Pneumonia [Unknown]
  - Oropharyngeal candidiasis [Unknown]
  - Diarrhoea [Unknown]
